FAERS Safety Report 21379345 (Version 1)
Quarter: 2022Q3

REPORT INFORMATION
  Report Type: Other
  Country: GB (occurrence: GB)
  Receive Date: 20220927
  Receipt Date: 20220927
  Transmission Date: 20221027
  Serious: Yes (Other)
  Sender: FDA-Public Use
  Company Number: GB-MACLEODS PHARMA EU LTD-MAC2022037341

PATIENT

DRUGS (7)
  1. MEMANTINE [Suspect]
     Active Substance: MEMANTINE
     Indication: Product used for unknown indication
     Dosage: 10 MILLIGRAM, QD
     Route: 065
     Dates: start: 20220524
  2. MEMANTINE [Suspect]
     Active Substance: MEMANTINE
     Dosage: 20 MILLIGRAM, QD
     Route: 065
  3. BRINZOLAMIDE [Concomitant]
     Active Substance: BRINZOLAMIDE
     Indication: Product used for unknown indication
     Dosage: 1 DOSAGE FORM, BID (LEFT EYE)
     Route: 065
     Dates: start: 20200206
  4. CETIRIZINE [Concomitant]
     Active Substance: CETIRIZINE HYDROCHLORIDE
     Indication: Pruritus
     Dosage: 1 DOSAGE FORM, QD (BEFORE BED)
     Route: 065
     Dates: start: 20220831
  5. Cetraben Emollient Cream [Concomitant]
     Indication: Product used for unknown indication
     Dosage: UNK (APPLY UP TO 8 TIMES A DAY TO WHOLE BODY)
     Route: 065
     Dates: start: 20220831
  6. PREDNISOLONE [Concomitant]
     Active Substance: PREDNISOLONE
     Indication: Product used for unknown indication
     Dosage: 6 DOSAGE FORM, QD (EACH MORNING FOR A WEEK)
     Route: 065
     Dates: start: 20220831
  7. SIMVASTATIN [Concomitant]
     Active Substance: SIMVASTATIN
     Indication: Product used for unknown indication
     Dosage: 1 DOSAGE FORM, QD (AT BEDTIME)
     Route: 065
     Dates: start: 20220523

REACTIONS (1)
  - Dermatitis allergic [Recovering/Resolving]
